FAERS Safety Report 24702311 (Version 1)
Quarter: 2024Q4

REPORT INFORMATION
  Report Type: Spontaneous
  Country: PT (occurrence: PT)
  Receive Date: 20241205
  Receipt Date: 20241205
  Transmission Date: 20250115
  Serious: Yes (Hospitalization, Other)
  Sender: Vantive US Healthcare
  Company Number: PT-VANTIVE-2024VAN021219

PATIENT
  Age: 59 Year
  Sex: Male

DRUGS (6)
  1. CALCIUM CHLORIDE\DEXTROSE\MAGNESIUM CHLORIDE\SODIUM CHLORIDE [Suspect]
     Active Substance: CALCIUM CHLORIDE\DEXTROSE\MAGNESIUM CHLORIDE\SODIUM CHLORIDE
     Dosage: 7.5 LITERS (L)
     Route: 033
     Dates: start: 20241104, end: 20241105
  2. EXTRANEAL [Suspect]
     Active Substance: CALCIUM CHLORIDE\ICODEXTRIN\MAGNESIUM CHLORIDE\SODIUM CHLORIDE\SODIUM LACTATE
     Dosage: 1L
     Route: 033
     Dates: start: 20241104, end: 20241105
  3. CARVEDILOL [Concomitant]
     Active Substance: CARVEDILOL
     Dosage: 25 MG, EVERY 12 HOURS
     Route: 065
  4. CARVEDILOL [Concomitant]
     Active Substance: CARVEDILOL
     Dosage: 6.25MG, 1 TABLET PER DAY AT BREAKFAST (9:00)
     Route: 048
  5. TAMSULOSIN HYDROCHLORIDE [Concomitant]
     Active Substance: TAMSULOSIN HYDROCHLORIDE
     Dosage: 0.4 MG, EVERY 24 HOURS
     Route: 065
  6. FLAVOXATE [Concomitant]
     Active Substance: FLAVOXATE
     Dosage: 20 MG, EVERY 12 HOURS
     Route: 065

REACTIONS (4)
  - Noninfectious peritonitis [Unknown]
  - Product use complaint [Unknown]
  - Incorrect dose administered [Unknown]
  - Procedural pain [Unknown]

NARRATIVE: CASE EVENT DATE: 20241104
